FAERS Safety Report 5040686-4 (Version None)
Quarter: 2006Q2

REPORT INFORMATION
  Report Type: 
  Country: None (occurrence: None)
  Receive Date: 20060629
  Receipt Date: 20060629
  Transmission Date: 20061013
  Serious: Yes (Life-Threatening)
  Sender: FDA-Public Use
  Company Number: None

PATIENT
  Age: 76 Year
  Sex: Male
  Weight: 92 kg

DRUGS (1)
  1. HURRICAINE SPRAY 20% BENZOCAINE BEUTLICH PHARMACEUTICALS [Suspect]
     Indication: ECHOCARDIOGRAM
     Dosage: 2-3 SPRAYS TOP
     Route: 061
     Dates: start: 20060627, end: 20060627

REACTIONS (4)
  - BLOOD METHAEMOGLOBIN PRESENT [None]
  - HYPOXIA [None]
  - OXYGEN SATURATION DECREASED [None]
  - SKIN DISCOLOURATION [None]
